FAERS Safety Report 7943367-X (Version None)
Quarter: 2011Q4

REPORT INFORMATION
  Report Type: 
  Country: None (occurrence: None)
  Receive Date: 20111128
  Receipt Date: 20111116
  Transmission Date: 20120403
  Serious: Yes (Other)
  Sender: FDA-Public Use
  Company Number: US-BAYER-2011-029289

PATIENT
  Age: 26 Year
  Sex: Female
  Weight: 50.794 kg

DRUGS (4)
  1. YASMIN [Suspect]
     Indication: CONTRACEPTION
     Dosage: UNK
     Dates: start: 20000101, end: 20100101
  2. YASMIN [Suspect]
     Indication: PREMENSTRUAL SYNDROME
  3. DROSPIRENONE AND ETHINYL ESTRADIOL [Suspect]
     Indication: PREMENSTRUAL SYNDROME
  4. DROSPIRENONE AND ETHINYL ESTRADIOL [Suspect]
     Indication: CONTRACEPTION
     Dosage: UNK
     Dates: start: 20000101, end: 20100101

REACTIONS (7)
  - CHOLECYSTITIS CHRONIC [None]
  - PAIN [None]
  - GALLBLADDER DISORDER [None]
  - INJURY [None]
  - GENERAL PHYSICAL HEALTH DETERIORATION [None]
  - EMOTIONAL DISTRESS [None]
  - ANXIETY [None]
